FAERS Safety Report 6051066-7 (Version None)
Quarter: 2009Q1

REPORT INFORMATION
  Report Type: 
  Country: None (occurrence: None)
  Receive Date: 20090121
  Receipt Date: 20090107
  Transmission Date: 20090719
  Serious: Yes (Other)
  Sender: FDA-Public Use
  Company Number: DSA_33083_2009

PATIENT
  Age: 60 Year
  Sex: Female

DRUGS (3)
  1. LORAZEPAM [Suspect]
     Indication: DEPRESSION
     Dosage: DF ORAL; A FEW WEEKS
     Route: 048
  2. TREVILOR (TREVILOR -VENLAFAXINE HYDROCHLORIDE) [Suspect]
     Indication: DEPRESSION
     Dosage: 75 MG 5X/DAY ORAL; 75 MG, 7-8 TIMES DAILY ORAL; 37.5 MG QD ORAL
     Route: 048
  3. TREVILOR (TREVILOR RETARD - VENLAFAXINE HYDROCHLORIDE) [Suspect]
     Indication: DEPRESSION
     Dosage: 75 MG 5X/WEEK ORAL; 75 MG, 7-8 TIMES PER DAY ORAL; 37.5 MG QD ORAL; A FEW WEEKS
     Route: 048

REACTIONS (15)
  - CONSTIPATION [None]
  - DEPENDENCE [None]
  - DIARRHOEA [None]
  - DRUG DEPENDENCE [None]
  - DRUG INEFFECTIVE [None]
  - HAEMORRHAGE SUBCUTANEOUS [None]
  - HEAD DISCOMFORT [None]
  - HEADACHE [None]
  - INTENTIONAL OVERDOSE [None]
  - MIGRAINE [None]
  - NAUSEA [None]
  - PRURITUS [None]
  - SKIN DISCOLOURATION [None]
  - SKIN DISORDER [None]
  - VISUAL IMPAIRMENT [None]
